FAERS Safety Report 7593700-6 (Version None)
Quarter: 2011Q3

REPORT INFORMATION
  Report Type: 
  Country: None (occurrence: None)
  Receive Date: 20110706
  Receipt Date: 20110621
  Transmission Date: 20111222
  Serious: Yes (Other)
  Sender: FDA-Public Use
  Company Number: PHHY2011US55467

PATIENT
  Sex: Female

DRUGS (2)
  1. EXFORGE [Suspect]
  2. DIOVAN [Suspect]

REACTIONS (4)
  - ARTERIOSCLEROSIS [None]
  - CATHETERISATION CARDIAC [None]
  - MIDDLE INSOMNIA [None]
  - BLOOD PRESSURE FLUCTUATION [None]
